FAERS Safety Report 7788232-6 (Version None)
Quarter: 2011Q3

REPORT INFORMATION
  Report Type: 
  Country: None (occurrence: None)
  Receive Date: 20110927
  Receipt Date: 20110913
  Transmission Date: 20111222
  Serious: Yes (Hospitalization)
  Sender: FDA-Public Use
  Company Number: 2011MA013473

PATIENT
  Age: 49 Year
  Sex: Female

DRUGS (1)
  1. LIDOCAINE [Suspect]
     Indication: PAIN
     Dosage: 1.5 ML 1IX;INJ

REACTIONS (7)
  - PAIN IN EXTREMITY [None]
  - MYALGIA [None]
  - NAUSEA [None]
  - NECK PAIN [None]
  - INCORRECT ROUTE OF DRUG ADMINISTRATION [None]
  - MALAISE [None]
  - GRAND MAL CONVULSION [None]
